FAERS Safety Report 6493435-7 (Version None)
Quarter: 2009Q4

REPORT INFORMATION
  Report Type: 
  Country: None (occurrence: None)
  Receive Date: 20091209
  Receipt Date: 20091201
  Transmission Date: 20100525
  Serious: Yes (Other)
  Sender: FDA-Public Use
  Company Number: 2009SP039097

PATIENT
  Age: 30 Year
  Sex: Female

DRUGS (2)
  1. DESOGESTREL AND ETHINYL ESTRADIOL [Suspect]
     Indication: CONTRACEPTION
     Dosage: PO
     Route: 048
     Dates: start: 20010101
  2. CLONAZEPAM [Suspect]
     Indication: EAR INFECTION

REACTIONS (3)
  - DRUG INTERACTION [None]
  - EAR INFECTION [None]
  - NEURALGIA [None]
